FAERS Safety Report 8147681 (Version 2)
Quarter: 2013Q3

REPORT INFORMATION
  Report Type: Spontaneous
  Country: US (occurrence: US)
  Receive Date: 20110922
  Receipt Date: 20130809
  Transmission Date: 20140515
  Serious: No
  Sender: FDA-Public Use
  Company Number: US-ASTRAZENECA-2011SE40499

PATIENT
  Age: 48 Year
  Sex: Female
  Weight: 49 kg

DRUGS (7)
  1. SEROQUEL XR [Suspect]
     Indication: BIPOLAR DISORDER
     Route: 048
     Dates: end: 201306
  2. ESTRADIOL [Concomitant]
     Indication: HORMONE THERAPY
     Dates: start: 2011
  3. PROVERA [Concomitant]
     Indication: HORMONE THERAPY
     Dates: start: 2011
  4. RANITIDINE [Concomitant]
     Dates: start: 2011
  5. CITALOPRAM [Concomitant]
     Indication: ANTIDEPRESSANT THERAPY
     Dates: start: 2011
  6. TEGRETOL [Concomitant]
     Dates: start: 2011
  7. TRAZADONE [Concomitant]
     Dates: start: 2011

REACTIONS (6)
  - Adverse event [Unknown]
  - Feeling abnormal [Unknown]
  - Decreased interest [Unknown]
  - Hypertension [Unknown]
  - Feeling abnormal [Unknown]
  - Drug dose omission [Unknown]
